FAERS Safety Report 5477112-7 (Version None)
Quarter: 2007Q3

REPORT INFORMATION
  Report Type: 
  Country: None (occurrence: None)
  Receive Date: 20070904
  Receipt Date: 20070727
  Transmission Date: 20080115
  Serious: No
  Sender: FDA-Public Use
  Company Number: PHEH2007US10508

PATIENT
  Sex: Male

DRUGS (1)
  1. ENABLEX [Suspect]
     Dates: start: 20070725

REACTIONS (1)
  - DRY MOUTH [None]
